FAERS Safety Report 7275815-5 (Version None)
Quarter: 2011Q1

REPORT INFORMATION
  Report Type: 
  Country: None (occurrence: None)
  Receive Date: 20110204
  Receipt Date: 20110127
  Transmission Date: 20110831
  Serious: Yes (Death, Other)
  Sender: FDA-Public Use
  Company Number: JP-GENENTECH-313012

PATIENT
  Age: 12 Year
  Sex: Male

DRUGS (2)
  1. METHOTREXATE [Concomitant]
     Indication: BURKITT'S LYMPHOMA
     Route: 065
  2. RITUXAN [Suspect]
     Indication: BURKITT'S LYMPHOMA

REACTIONS (2)
  - HISTIOCYTOSIS HAEMATOPHAGIC [None]
  - SEPSIS [None]
